FAERS Safety Report 21594509 (Version 1)
Quarter: 2022Q4

REPORT INFORMATION
  Report Type: Report from Study
  Country: US (occurrence: US)
  Receive Date: 20221115
  Receipt Date: 20221115
  Transmission Date: 20230112
  Serious: No
  Sender: FDA-Public Use
  Company Number: US-ABBVIE-22K-163-4525288-00

PATIENT
  Sex: Female

DRUGS (1)
  1. IMBRUVICA [Suspect]
     Active Substance: IBRUTINIB
     Indication: Lymphoma
     Route: 048
     Dates: start: 201506

REACTIONS (6)
  - Heart rate increased [Unknown]
  - Nail disorder [Unknown]
  - Rash [Unknown]
  - Petechiae [Unknown]
  - Heart rate irregular [Unknown]
  - Sinus tachycardia [Unknown]
